FAERS Safety Report 5829702-7 (Version None)
Quarter: 2008Q3

REPORT INFORMATION
  Report Type: 
  Country: None (occurrence: None)
  Receive Date: 20080718
  Receipt Date: 20080710
  Transmission Date: 20090109
  Serious: Yes (Other)
  Sender: FDA-Public Use
  Company Number: 200813831

PATIENT
  Age: 83 Year
  Sex: Male
  Weight: 75 kg

DRUGS (12)
  1. ALBURX 5% (CSL BEHRING) [Suspect]
     Indication: CARDIAC OPERATION
     Dosage: 1500 ML ONCE IV
     Route: 042
     Dates: start: 20080616, end: 20080616
  2. ALBURX 5% (CSL BEHRING) [Suspect]
     Indication: VOLUME BLOOD DECREASED
     Dosage: 1500 ML ONCE IV
     Route: 042
     Dates: start: 20080616, end: 20080616
  3. BUMINATE 5% [Suspect]
     Indication: CARDIAC OPERATION
     Dosage: 500 ML DAILY IV
     Route: 042
     Dates: start: 20080616, end: 20080616
  4. FLOMAX [Concomitant]
  5. LISINOPRIL [Concomitant]
  6. NEXIUM [Concomitant]
  7. NORVASC [Concomitant]
  8. NIACIN CR [Concomitant]
  9. GLUCOSAMINE [Concomitant]
  10. FORANE [Concomitant]
  11. FENTANYL [Concomitant]
  12. INSULIN [Concomitant]

REACTIONS (7)
  - ANGIOPATHY [None]
  - DRUG INEFFECTIVE [None]
  - HYPOTENSION [None]
  - PARESIS [None]
  - PHARMACEUTICAL PRODUCT COMPLAINT [None]
  - POST PROCEDURAL COMPLICATION [None]
  - VASCULAR RESISTANCE SYSTEMIC DECREASED [None]
